FAERS Safety Report 8742837 (Version 2)
Quarter: 2012Q4

REPORT INFORMATION
  Report Type: 
  Country: JP (occurrence: JP)
  Receive Date: 20120824
  Receipt Date: 20120904
  Transmission Date: 20130627
  Serious: Yes (Hospitalization)
  Sender: FDA-Public Use
  Company Number: JP-009507513-1208JPN004878

PATIENT

DRUGS (5)
  1. REMERON [Suspect]
     Indication: DEPRESSION
     Dosage: 750 mg, qd
     Route: 048
     Dates: start: 20120727, end: 20120727
  2. REMERON [Suspect]
     Indication: SLEEP DISORDER
  3. PAXIL [Concomitant]
     Indication: DEPRESSION
     Dosage: 25 mg, qd
     Route: 048
     Dates: start: 20100831
  4. PAXIL [Concomitant]
     Indication: PANIC DISORDER
  5. MEILAX [Concomitant]
     Indication: ANXIETY
     Dosage: 2 mg, qd
     Route: 048
     Dates: start: 20100928

REACTIONS (1)
  - Overdose [Recovered/Resolved]
